FAERS Safety Report 23260180 (Version 10)
Quarter: 2024Q4

REPORT INFORMATION
  Report Type: Spontaneous
  Country: JP (occurrence: JP)
  Receive Date: 20231204
  Receipt Date: 20241115
  Transmission Date: 20250114
  Serious: Yes (Death, Life-Threatening, Hospitalization, Other)
  Sender: TAKEDA
  Company Number: JP-TAKEDA-2023TJP014720

PATIENT
  Age: 75 Year
  Sex: Male
  Weight: 67.8 kg

DRUGS (13)
  1. TEDUGLUTIDE [Suspect]
     Active Substance: TEDUGLUTIDE
     Indication: Short-bowel syndrome
     Dosage: 3.8 MILLIGRAM, QD
     Dates: start: 20231017
  2. TEDUGLUTIDE [Suspect]
     Active Substance: TEDUGLUTIDE
     Dosage: 3.8 MILLIGRAM, QD
  3. TEDUGLUTIDE [Suspect]
     Active Substance: TEDUGLUTIDE
     Dosage: 1.9 MILLIGRAM
  4. TEDUGLUTIDE [Suspect]
     Active Substance: TEDUGLUTIDE
  5. VONOPRAZAN FUMARATE [Concomitant]
     Active Substance: VONOPRAZAN FUMARATE
     Indication: Product used for unknown indication
     Dosage: 20 MILLIGRAM, QD
  6. URSO [Concomitant]
     Active Substance: URSODIOL
     Indication: Product used for unknown indication
     Dosage: 100 MILLIGRAM, TID
  7. METHYLCOBALAMIN [Concomitant]
     Active Substance: METHYLCOBALAMIN
     Indication: Product used for unknown indication
     Dosage: 500 MICROGRAM, TID
  8. CANDESARTAN [Concomitant]
     Active Substance: CANDESARTAN
     Indication: Product used for unknown indication
     Dosage: 4 MILLIGRAM, QD
  9. EDOXABAN TOSYLATE [Concomitant]
     Active Substance: EDOXABAN TOSYLATE
     Indication: Product used for unknown indication
     Dosage: 60 MILLIGRAM, QD
  10. LOPEMIN [Concomitant]
     Indication: Product used for unknown indication
     Dosage: 2 MILLIGRAM, BID
  11. DIETARY SUPPLEMENT\PROBIOTICS [Concomitant]
     Active Substance: DIETARY SUPPLEMENT\PROBIOTICS NOS
     Dosage: 6 DOSAGE FORM
  12. POLAPREZINC [Concomitant]
     Active Substance: POLAPREZINC
     Dosage: 75 MILLIGRAM, BID
  13. CALONAL [Concomitant]
     Active Substance: ACETAMINOPHEN
     Dosage: 500 MILLIGRAM, BID

REACTIONS (18)
  - Malnutrition [Fatal]
  - General physical health deterioration [Fatal]
  - Hepatic cyst [Fatal]
  - Post procedural infection [Recovered/Resolved with Sequelae]
  - Abdominal pain [Recovered/Resolved]
  - Renal impairment [Not Recovered/Not Resolved]
  - Inguinal hernia [Unknown]
  - Hepatic function abnormal [Not Recovered/Not Resolved]
  - Short-bowel syndrome [Not Recovered/Not Resolved]
  - Cardiac failure [Not Recovered/Not Resolved]
  - Oedema peripheral [Not Recovered/Not Resolved]
  - Enterocolitis [Recovering/Resolving]
  - Blood albumin decreased [Unknown]
  - Weight decreased [Unknown]
  - Diarrhoea [Unknown]
  - Abdominal distension [Unknown]
  - Abdominal distension [Unknown]
  - Wrong technique in product usage process [Unknown]

NARRATIVE: CASE EVENT DATE: 20231022
